FAERS Safety Report 7300143-9 (Version None)
Quarter: 2011Q1

REPORT INFORMATION
  Report Type: 
  Country: None (occurrence: None)
  Receive Date: 20110217
  Receipt Date: 20110214
  Transmission Date: 20110831
  Serious: Yes (Other)
  Sender: FDA-Public Use
  Company Number: FI-BIOGENIDEC-2011BI002403

PATIENT
  Age: 43 Year
  Sex: Female

DRUGS (6)
  1. AVAMYS [Concomitant]
     Route: 045
  2. SOMAC [Concomitant]
  3. DESOGESTREL AND ETHINYL ESTRADIOL [Concomitant]
  4. CYMBALTA [Concomitant]
  5. BISOPROLOL [Concomitant]
  6. TYSABRI [Suspect]
     Indication: MULTIPLE SCLEROSIS
     Route: 042
     Dates: start: 20101217

REACTIONS (1)
  - BLOOD IMMUNOGLOBULIN M DECREASED [None]
